FAERS Safety Report 7682182-1 (Version None)
Quarter: 2011Q3

REPORT INFORMATION
  Report Type: 
  Country: None (occurrence: None)
  Receive Date: 20110815
  Receipt Date: 20110810
  Transmission Date: 20111222
  Serious: No
  Sender: FDA-Public Use
  Company Number: US-AMGEN-USASP2011039790

PATIENT
  Sex: Female

DRUGS (3)
  1. ELTROMBOPAG [Concomitant]
  2. NPLATE [Suspect]
     Indication: THROMBOCYTOPENIA
  3. NPLATE [Suspect]
     Indication: IDIOPATHIC THROMBOCYTOPENIC PURPURA
     Dates: start: 20110222

REACTIONS (1)
  - BACK PAIN [None]
